FAERS Safety Report 13234322 (Version 1)
Quarter: 2017Q1

REPORT INFORMATION
  Report Type: Spontaneous
  Country: GB (occurrence: GB)
  Receive Date: 20170215
  Receipt Date: 20170215
  Transmission Date: 20170428
  Serious: Yes (Other)
  Sender: FDA-Public Use
  Company Number: GB-CIPLA LTD.-2016GB00549

PATIENT

DRUGS (3)
  1. SIMPONI [Suspect]
     Active Substance: GOLIMUMAB
     Indication: PRODUCT USED FOR UNKNOWN INDICATION
     Dosage: 50 MG, MONTHLY
     Route: 058
  2. GABAPENTIN. [Suspect]
     Active Substance: GABAPENTIN
     Indication: PRODUCT USED FOR UNKNOWN INDICATION
     Dosage: DOSAGE FORM: UNSPECIFIED
     Route: 065
  3. METHOTREXATE. [Suspect]
     Active Substance: METHOTREXATE
     Indication: PRODUCT USED FOR UNKNOWN INDICATION
     Dosage: 10 MG, ONCE EVERY WEEK, DOSAGE FORM: UNSPECIFIED
     Route: 065

REACTIONS (12)
  - Malaise [Unknown]
  - Psoriasis [Not Recovered/Not Resolved]
  - Dysphonia [Unknown]
  - Surgery [Unknown]
  - Rash [Not Recovered/Not Resolved]
  - White blood cell count increased [Unknown]
  - Influenza [Recovering/Resolving]
  - Drug ineffective [Unknown]
  - Peripheral swelling [Unknown]
  - Pain [Unknown]
  - Toe operation [Unknown]
  - Lethargy [Unknown]

NARRATIVE: CASE EVENT DATE: 20160205
